FAERS Safety Report 6980345-1 (Version None)
Quarter: 2010Q3

REPORT INFORMATION
  Report Type: 
  Country: None (occurrence: None)
  Receive Date: 20100909
  Receipt Date: 20100830
  Transmission Date: 20110219
  Serious: Yes (Other)
  Sender: FDA-Public Use
  Company Number: 2010SP038663

PATIENT
  Age: 47 Year
  Sex: Female

DRUGS (33)
  1. MIRTAZAPINE [Suspect]
     Indication: ANXIETY
     Dosage: 15 MG; QD; PO, 30 MG; QD; PO, 45 MG; QD; PO
     Route: 048
     Dates: start: 20091124, end: 20091129
  2. MIRTAZAPINE [Suspect]
     Indication: IRRITABILITY
     Dosage: 15 MG; QD; PO, 30 MG; QD; PO, 45 MG; QD; PO
     Route: 048
     Dates: start: 20091124, end: 20091129
  3. MIRTAZAPINE [Suspect]
     Indication: ANXIETY
     Dosage: 15 MG; QD; PO, 30 MG; QD; PO, 45 MG; QD; PO
     Route: 048
     Dates: start: 20091130, end: 20091208
  4. MIRTAZAPINE [Suspect]
     Indication: IRRITABILITY
     Dosage: 15 MG; QD; PO, 30 MG; QD; PO, 45 MG; QD; PO
     Route: 048
     Dates: start: 20091130, end: 20091208
  5. MIRTAZAPINE [Suspect]
     Indication: ANXIETY
     Dosage: 15 MG; QD; PO, 30 MG; QD; PO, 45 MG; QD; PO
     Route: 048
     Dates: start: 20091209, end: 20100710
  6. MIRTAZAPINE [Suspect]
     Indication: IRRITABILITY
     Dosage: 15 MG; QD; PO, 30 MG; QD; PO, 45 MG; QD; PO
     Route: 048
     Dates: start: 20091209, end: 20100710
  7. QUETIAPINE FUMARATE [Suspect]
     Indication: ANXIETY
     Dosage: 100 MG; QD; PO, 400 MG; QD; PO, 500 MG; QD; PO, 600 MG; QD; PO, 350 MG; QD; PO
     Route: 048
     Dates: start: 20100703, end: 20100710
  8. QUETIAPINE FUMARATE [Suspect]
     Indication: INSOMNIA
     Dosage: 100 MG; QD; PO, 400 MG; QD; PO, 500 MG; QD; PO, 600 MG; QD; PO, 350 MG; QD; PO
     Route: 048
     Dates: start: 20100703, end: 20100710
  9. QUETIAPINE FUMARATE [Suspect]
     Indication: IRRITABILITY
     Dosage: 100 MG; QD; PO, 400 MG; QD; PO, 500 MG; QD; PO, 600 MG; QD; PO, 350 MG; QD; PO
     Route: 048
     Dates: start: 20100703, end: 20100710
  10. QUETIAPINE FUMARATE [Suspect]
     Indication: ANXIETY
     Dosage: 100 MG; QD; PO, 400 MG; QD; PO, 500 MG; QD; PO, 600 MG; QD; PO, 350 MG; QD; PO
     Route: 048
     Dates: start: 20091126
  11. QUETIAPINE FUMARATE [Suspect]
     Indication: INSOMNIA
     Dosage: 100 MG; QD; PO, 400 MG; QD; PO, 500 MG; QD; PO, 600 MG; QD; PO, 350 MG; QD; PO
     Route: 048
     Dates: start: 20091126
  12. QUETIAPINE FUMARATE [Suspect]
     Indication: IRRITABILITY
     Dosage: 100 MG; QD; PO, 400 MG; QD; PO, 500 MG; QD; PO, 600 MG; QD; PO, 350 MG; QD; PO
     Route: 048
     Dates: start: 20091126
  13. QUETIAPINE FUMARATE [Suspect]
     Indication: ANXIETY
     Dosage: 100 MG; QD; PO, 400 MG; QD; PO, 500 MG; QD; PO, 600 MG; QD; PO, 350 MG; QD; PO
     Route: 048
     Dates: start: 20091202
  14. QUETIAPINE FUMARATE [Suspect]
     Indication: INSOMNIA
     Dosage: 100 MG; QD; PO, 400 MG; QD; PO, 500 MG; QD; PO, 600 MG; QD; PO, 350 MG; QD; PO
     Route: 048
     Dates: start: 20091202
  15. QUETIAPINE FUMARATE [Suspect]
     Indication: IRRITABILITY
     Dosage: 100 MG; QD; PO, 400 MG; QD; PO, 500 MG; QD; PO, 600 MG; QD; PO, 350 MG; QD; PO
     Route: 048
     Dates: start: 20091202
  16. QUETIAPINE FUMARATE [Suspect]
     Indication: ANXIETY
     Dosage: 100 MG; QD; PO, 400 MG; QD; PO, 500 MG; QD; PO, 600 MG; QD; PO, 350 MG; QD; PO
     Route: 048
     Dates: start: 20091207
  17. QUETIAPINE FUMARATE [Suspect]
     Indication: INSOMNIA
     Dosage: 100 MG; QD; PO, 400 MG; QD; PO, 500 MG; QD; PO, 600 MG; QD; PO, 350 MG; QD; PO
     Route: 048
     Dates: start: 20091207
  18. QUETIAPINE FUMARATE [Suspect]
     Indication: IRRITABILITY
     Dosage: 100 MG; QD; PO, 400 MG; QD; PO, 500 MG; QD; PO, 600 MG; QD; PO, 350 MG; QD; PO
     Route: 048
     Dates: start: 20091207
  19. QUETIAPINE FUMARATE [Suspect]
     Indication: ANXIETY
     Dosage: 100 MG; QD; PO, 400 MG; QD; PO, 500 MG; QD; PO, 600 MG; QD; PO, 350 MG; QD; PO
     Route: 048
     Dates: start: 20100104
  20. QUETIAPINE FUMARATE [Suspect]
     Indication: INSOMNIA
     Dosage: 100 MG; QD; PO, 400 MG; QD; PO, 500 MG; QD; PO, 600 MG; QD; PO, 350 MG; QD; PO
     Route: 048
     Dates: start: 20100104
  21. QUETIAPINE FUMARATE [Suspect]
     Indication: IRRITABILITY
     Dosage: 100 MG; QD; PO, 400 MG; QD; PO, 500 MG; QD; PO, 600 MG; QD; PO, 350 MG; QD; PO
     Route: 048
     Dates: start: 20100104
  22. QUETIAPINE FUMARATE [Suspect]
     Indication: ANXIETY
     Dosage: 100 MG; QD; PO, 400 MG; QD; PO, 500 MG; QD; PO, 600 MG; QD; PO, 350 MG; QD; PO
     Route: 048
     Dates: start: 20100410
  23. QUETIAPINE FUMARATE [Suspect]
     Indication: INSOMNIA
     Dosage: 100 MG; QD; PO, 400 MG; QD; PO, 500 MG; QD; PO, 600 MG; QD; PO, 350 MG; QD; PO
     Route: 048
     Dates: start: 20100410
  24. QUETIAPINE FUMARATE [Suspect]
     Indication: IRRITABILITY
     Dosage: 100 MG; QD; PO, 400 MG; QD; PO, 500 MG; QD; PO, 600 MG; QD; PO, 350 MG; QD; PO
     Route: 048
     Dates: start: 20100410
  25. QUETIAPINE FUMARATE [Suspect]
     Indication: ANXIETY
     Dosage: 100 MG; QD; PO, 400 MG; QD; PO, 500 MG; QD; PO, 600 MG; QD; PO, 350 MG; QD; PO
     Route: 048
     Dates: start: 20100508
  26. QUETIAPINE FUMARATE [Suspect]
     Indication: INSOMNIA
     Dosage: 100 MG; QD; PO, 400 MG; QD; PO, 500 MG; QD; PO, 600 MG; QD; PO, 350 MG; QD; PO
     Route: 048
     Dates: start: 20100508
  27. QUETIAPINE FUMARATE [Suspect]
     Indication: IRRITABILITY
     Dosage: 100 MG; QD; PO, 400 MG; QD; PO, 500 MG; QD; PO, 600 MG; QD; PO, 350 MG; QD; PO
     Route: 048
     Dates: start: 20100508
  28. DIMETHICONE [Concomitant]
  29. MAGNESIUM OXIDE [Concomitant]
  30. BROTIZOLAM [Concomitant]
  31. TETRAMIDE [Concomitant]
  32. LITHIUM CARBONATE [Concomitant]
  33. LULLAN [Concomitant]

REACTIONS (11)
  - ALANINE AMINOTRANSFERASE INCREASED [None]
  - ANXIETY [None]
  - ASPARTATE AMINOTRANSFERASE INCREASED [None]
  - BLOOD BILIRUBIN INCREASED [None]
  - FATIGUE [None]
  - GAMMA-GLUTAMYLTRANSFERASE INCREASED [None]
  - HEPATIC FUNCTION ABNORMAL [None]
  - LIVER DISORDER [None]
  - OEDEMA PERIPHERAL [None]
  - RASH GENERALISED [None]
  - SOMNOLENCE [None]
